FAERS Safety Report 6591183-6 (Version None)
Quarter: 2010Q1

REPORT INFORMATION
  Report Type: 
  Country: None (occurrence: None)
  Receive Date: 20100219
  Receipt Date: 20100210
  Transmission Date: 20100710
  Serious: Yes (Other)
  Sender: FDA-Public Use
  Company Number: JP-ROCHE-685804

PATIENT
  Sex: Female

DRUGS (1)
  1. CELLCEPT [Suspect]
     Route: 048

REACTIONS (3)
  - ABORTION [None]
  - RENAL IMPAIRMENT [None]
  - THROMBOTIC THROMBOCYTOPENIC PURPURA [None]
